FAERS Safety Report 26052570 (Version 1)
Quarter: 2025Q4

REPORT INFORMATION
  Report Type: Spontaneous
  Country: US (occurrence: US)
  Receive Date: 20251117
  Receipt Date: 20251117
  Transmission Date: 20260118
  Serious: Yes (Life-Threatening, Hospitalization, Other)
  Sender: AUROBINDO
  Company Number: US-MLMSERVICE-20251029-PI691263-00029-1

PATIENT
  Sex: Male

DRUGS (2)
  1. ACETAMINOPHEN [Suspect]
     Active Substance: ACETAMINOPHEN
     Indication: Product used for unknown indication
     Dosage: 100 DOSAGE FORM (HE ADMITTED TAKING ONE HUNDRED TABLETS OF EXTENDED-RELEASE APAP)
  2. APIXABAN [Concomitant]
     Active Substance: APIXABAN
     Indication: Pulmonary embolism
     Dosage: UNK
     Route: 065

REACTIONS (5)
  - Encephalopathy [Recovering/Resolving]
  - Suicide attempt [Recovering/Resolving]
  - Coma [Recovered/Resolved]
  - Metabolic acidosis [Recovering/Resolving]
  - Intentional overdose [Recovering/Resolving]
